FAERS Safety Report 8581786-1 (Version None)
Quarter: 2012Q3

REPORT INFORMATION
  Report Type: 
  Country: None (occurrence: None)
  Receive Date: 20120809
  Receipt Date: 20120807
  Transmission Date: 20120928
  Serious: Yes (Hospitalization)
  Sender: FDA-Public Use
  Company Number: PHEH2011US010354

PATIENT
  Sex: Female

DRUGS (1)
  1. GILENYA [Suspect]
     Dosage: 0.5 MG, DAILY
     Route: 048
     Dates: start: 20111110

REACTIONS (7)
  - DECREASED APPETITE [None]
  - HEADACHE [None]
  - COLD SWEAT [None]
  - NAUSEA [None]
  - VOMITING [None]
  - DIARRHOEA [None]
  - WEIGHT DECREASED [None]
